FAERS Safety Report 11186354 (Version 1)
Quarter: 2015Q2

REPORT INFORMATION
  Report Type: Spontaneous
  Country: TR (occurrence: TR)
  Receive Date: 20150612
  Receipt Date: 20150612
  Transmission Date: 20150821
  Serious: Yes (Other)
  Sender: FDA-Public Use
  Company Number: TR-ALLERGAN-1510878US

PATIENT
  Age: 53 Year
  Sex: Female

DRUGS (1)
  1. OZURDEX [Suspect]
     Active Substance: DEXAMETHASONE
     Indication: CHORIORETINITIS
     Dosage: 0.7 MG, SINGLE
     Route: 031

REACTIONS (3)
  - Visual impairment [Unknown]
  - Vitreous haemorrhage [Unknown]
  - Syphilis [Unknown]

NARRATIVE: CASE EVENT DATE: 20150606
